FAERS Safety Report 7805325-5 (Version None)
Quarter: 2011Q4

REPORT INFORMATION
  Report Type: 
  Country: None (occurrence: None)
  Receive Date: 20111010
  Receipt Date: 20110930
  Transmission Date: 20120403
  Serious: Yes (Other)
  Sender: FDA-Public Use
  Company Number: IT-ASTRAZENECA-2011SE59224

PATIENT
  Age: 54 Year
  Sex: Male

DRUGS (1)
  1. TENORETIC 100 [Suspect]
     Indication: HYPERTENSION
     Dosage: 100+25 MILLIGRAMS, UNKNOWN.
     Route: 048
     Dates: start: 20070101

REACTIONS (2)
  - POLYURIA [None]
  - HYPERGLYCAEMIA [None]
